FAERS Safety Report 5249914-3 (Version None)
Quarter: 2007Q1

REPORT INFORMATION
  Report Type: 
  Country: None (occurrence: None)
  Receive Date: 20070228
  Receipt Date: 20060309
  Transmission Date: 20070707
  Serious: No
  Sender: FDA-Public Use
  Company Number: US-GLAXOSMITHKLINE-A0585170A

PATIENT
  Age: 46 Year
  Sex: Female

DRUGS (3)
  1. LAMICTAL [Suspect]
     Indication: BIPOLAR DISORDER
     Dosage: 25MG AT NIGHT
     Route: 048
     Dates: start: 20050923, end: 20051110
  2. WELLBUTRIN SR [Concomitant]
     Dosage: 150MG IN THE MORNING
     Route: 048
  3. XANAX [Concomitant]
     Route: 048

REACTIONS (1)
  - PYREXIA [None]
